FAERS Safety Report 8854602 (Version 2)
Quarter: 2012Q4

REPORT INFORMATION
  Report Type: 
  Country: US (occurrence: US)
  Receive Date: 20121023
  Receipt Date: 20121030
  Transmission Date: 20130627
  Serious: Yes (Hospitalization)
  Sender: FDA-Public Use
  Company Number: US-UCBSA-069054

PATIENT
  Age: 36 Year
  Sex: Male

DRUGS (1)
  1. CIMZIA [Suspect]
     Indication: CROHN^S DISEASE
     Dates: start: 2009

REACTIONS (1)
  - Ileal stenosis [Recovering/Resolving]
